FAERS Safety Report 10032802 (Version 5)
Quarter: 2014Q3

REPORT INFORMATION
  Report Type: Spontaneous
  Country: ES (occurrence: ES)
  Receive Date: 20140324
  Receipt Date: 20140728
  Transmission Date: 20150326
  Serious: Yes (Other)
  Sender: FDA-Public Use
  Company Number: ES-THROMBOGENICS NV-JET-2014-101

PATIENT
  Age: 51 Year
  Sex: Female

DRUGS (3)
  1. JETREA [Suspect]
     Active Substance: OCRIPLASMIN
     Indication: VITREOUS ADHESIONS
  2. JETREA [Suspect]
     Active Substance: OCRIPLASMIN
     Indication: MACULAR HOLE
     Dosage: 0.1 ML, ONE TIME DOSE
     Route: 031
     Dates: start: 20140228, end: 20140228
  3. XALATAN [Concomitant]
     Active Substance: LATANOPROST
     Indication: PRODUCT USED FOR UNKNOWN INDICATION
     Dosage: 1 DROP, UNK
     Route: 061
     Dates: start: 2013

REACTIONS (19)
  - Visual acuity reduced [Not Recovered/Not Resolved]
  - Ciliary hyperaemia [Not Recovered/Not Resolved]
  - Visual impairment [Not Recovered/Not Resolved]
  - Metamorphopsia [Unknown]
  - Halo vision [Unknown]
  - Visual field defect [Unknown]
  - Vitreous floaters [Unknown]
  - Visual acuity reduced transiently [Recovered/Resolved]
  - Retinal artery spasm [Recovered/Resolved]
  - Retinal vascular disorder [Recovering/Resolving]
  - Retinogram abnormal [Unknown]
  - Vision blurred [Unknown]
  - Retinal injury [Not Recovered/Not Resolved]
  - Disease progression [Not Recovered/Not Resolved]
  - Photopsia [Unknown]
  - Conjunctival hyperaemia [Recovered/Resolved]
  - Retinal toxicity [Not Recovered/Not Resolved]
  - Macular hole [Not Recovered/Not Resolved]
  - Photophobia [Unknown]

NARRATIVE: CASE EVENT DATE: 20140301
